FAERS Safety Report 13377108 (Version 1)
Quarter: 2017Q1

REPORT INFORMATION
  Report Type: Spontaneous
  Country: US (occurrence: US)
  Receive Date: 20170328
  Receipt Date: 20170328
  Transmission Date: 20170429
  Serious: No
  Sender: FDA-Public Use
  Company Number: US-009507513-1703USA010113

PATIENT
  Age: 23 Year
  Sex: Female
  Weight: 61.22 kg

DRUGS (1)
  1. NEXPLANON [Suspect]
     Active Substance: ETONOGESTREL
     Indication: CONTRACEPTION
     Dosage: 1 IMPLANT ONCE PER THREE YEARS
     Route: 059
     Dates: start: 20161212

REACTIONS (4)
  - Complication associated with device [Not Recovered/Not Resolved]
  - Migration of implanted drug [Not Recovered/Not Resolved]
  - Implant site pain [Unknown]
  - Implant site pain [Unknown]

NARRATIVE: CASE EVENT DATE: 20161212
